FAERS Safety Report 9536436 (Version 1)
Quarter: 2013Q2

REPORT INFORMATION
  Report Type: Spontaneous
  Country: US (occurrence: None)
  Receive Date: 20130507
  Receipt Date: 20130507
  Transmission Date: 20140414
  Serious: No
  Sender: FDA-Public Use
  Company Number: PHEH2012US024728

PATIENT
  Age: 71 Year
  Sex: Female
  Weight: 93 kg

DRUGS (3)
  1. AFINITOR (RAD) [Suspect]
     Indication: BREAST CANCER
     Route: 048
     Dates: start: 20120808, end: 20121115
  2. CAPECITABINE (CAPECITABINE) [Concomitant]
  3. AROMASIN (EXEMIESTANE) [Concomitant]

REACTIONS (8)
  - Renal failure acute [None]
  - Thrombocytopenia [None]
  - Anaemia [None]
  - Dyspnoea [None]
  - Malaise [None]
  - Epistaxis [None]
  - Haemoglobin decreased [None]
  - Fatigue [None]
